FAERS Safety Report 10154231 (Version 2)
Quarter: 2014Q3

REPORT INFORMATION
  Report Type: Spontaneous
  Country: IT (occurrence: None)
  Receive Date: 20140502
  Receipt Date: 20140723
  Transmission Date: 20150326
  Serious: Yes (Other)
  Sender: FDA-Public Use
  Company Number: 2310169

PATIENT
  Age: 76 Year
  Sex: Female

DRUGS (9)
  1. DELTACORTENE [Concomitant]
     Active Substance: PREDNISONE
  2. TRIMETON [Concomitant]
     Active Substance: CHLORPHENIRAMINE MALEATE
  3. ZANTAC [Concomitant]
     Active Substance: RANITIDINE HYDROCHLORIDE
  4. ZOFRAN [Concomitant]
     Active Substance: ONDANSETRON HYDROCHLORIDE
  5. PACLITAXEL. [Suspect]
     Active Substance: PACLITAXEL
     Indication: ADENOSQUAMOUS CELL LUNG CANCER
     Dosage: 110 MG MILLIGRAM(S) (TOTAL) INTRAVENOUS (NOT OTHERWISE SPECIFIED)
     Route: 042
     Dates: start: 20140409, end: 20140409
  6. CARBOPLATIN. [Concomitant]
     Active Substance: CARBOPLATIN
  7. LANSOPRAZOLE. [Concomitant]
     Active Substance: LANSOPRAZOLE
  8. OXYCONTIN [Concomitant]
     Active Substance: OXYCODONE HYDROCHLORIDE
  9. SOLDESAM [Concomitant]
     Active Substance: DEXAMETHASONE

REACTIONS (3)
  - Back pain [None]
  - Flushing [None]
  - Presyncope [None]

NARRATIVE: CASE EVENT DATE: 20140409
